FAERS Safety Report 4881798-5 (Version None)
Quarter: 2006Q1

REPORT INFORMATION
  Report Type: 
  Country: None (occurrence: None)
  Receive Date: 20060112
  Receipt Date: 20060112
  Transmission Date: 20060701
  Serious: Yes (Hospitalization)
  Sender: FDA-Public Use
  Company Number: None

PATIENT
  Age: 66 Year
  Sex: Male
  Weight: 49 kg

DRUGS (1)
  1. PHENYTOIN [Suspect]
     Indication: CONVULSION
     Dosage: PO
     Route: 048

REACTIONS (4)
  - AGGRESSION [None]
  - ANTICONVULSANT TOXICITY [None]
  - CONFUSIONAL STATE [None]
  - MENTAL STATUS CHANGES [None]
